FAERS Safety Report 8495284-7 (Version None)
Quarter: 2012Q2

REPORT INFORMATION
  Report Type: 
  Country: None (occurrence: None)
  Receive Date: 20120628
  Receipt Date: 20120618
  Transmission Date: 20120825
  Serious: Yes (Hospitalization)
  Sender: FDA-Public Use
  Company Number: DKLU1082219

PATIENT
  Age: 39 Year
  Sex: Male

DRUGS (8)
  1. ZONEGRAN [Concomitant]
  2. BANZEL (RUFINAMIDE) [Concomitant]
  3. ONFI [Suspect]
     Indication: LENNOX-GASTAUT SYNDROME
     Dosage: SEE IMAGE
     Route: 048
     Dates: start: 20120513
  4. ONFI [Suspect]
     Indication: LENNOX-GASTAUT SYNDROME
     Dosage: SEE IMAGE
     Route: 048
     Dates: start: 20120524, end: 20120608
  5. ONFI [Suspect]
     Indication: LENNOX-GASTAUT SYNDROME
     Dosage: SEE IMAGE
     Route: 048
     Dates: start: 20120524, end: 20120608
  6. ONFI [Suspect]
     Indication: LENNOX-GASTAUT SYNDROME
     Dosage: SEE IMAGE
     Route: 048
     Dates: start: 20120503
  7. KEPPRA [Concomitant]
  8. DEPAKOTE [Concomitant]

REACTIONS (3)
  - HYPOPHAGIA [None]
  - ABASIA [None]
  - LETHARGY [None]
